FAERS Safety Report 10611530 (Version 1)
Quarter: 2014Q4

REPORT INFORMATION
  Report Type: Spontaneous
  Country: TR (occurrence: TR)
  Receive Date: 20141126
  Receipt Date: 20141126
  Transmission Date: 20150529
  Serious: Yes (Hospitalization)
  Sender: FDA-Public Use
  Company Number: TR-BAYER-2014-172908

PATIENT
  Age: 41 Year
  Sex: Male

DRUGS (2)
  1. ACETYLSALICYLIC ACID (} 100 MG) [Suspect]
     Active Substance: ASPIRIN
     Dosage: 100 MG PER DAY
  2. WARFARIN [Interacting]
     Active Substance: WARFARIN
     Dosage: UNK

REACTIONS (9)
  - Anaemia [Recovered/Resolved]
  - Potentiating drug interaction [None]
  - Femoral nerve palsy [Recovered/Resolved]
  - Joint contracture [Recovered/Resolved]
  - Groin pain [Recovered/Resolved]
  - Paraesthesia [Recovered/Resolved]
  - Muscular weakness [Recovered/Resolved]
  - Retroperitoneal haematoma [Recovered/Resolved]
  - Abdominal pain [Recovered/Resolved]
